FAERS Safety Report 7511836-2 (Version None)
Quarter: 2011Q2

REPORT INFORMATION
  Report Type: 
  Country: None (occurrence: None)
  Receive Date: 20110531
  Receipt Date: 20110525
  Transmission Date: 20111010
  Serious: Yes (Other)
  Sender: FDA-Public Use
  Company Number: DE-PFIZER INC-2011112826

PATIENT
  Age: 67 Year
  Sex: Male

DRUGS (1)
  1. DIFLUCAN [Suspect]
     Dosage: 50 MG, 1X/DAY
     Dates: start: 20110401

REACTIONS (1)
  - EROSIVE BALANITIS [None]
